FAERS Safety Report 10171608 (Version 1)
Quarter: 2014Q2

REPORT INFORMATION
  Report Type: Spontaneous
  Country: US (occurrence: None)
  Receive Date: 20140428
  Receipt Date: 20140428
  Transmission Date: 20141212
  Serious: No
  Sender: FDA-Public Use
  Company Number: PHEH2014US000850

PATIENT
  Age: 44 Year
  Sex: Female

DRUGS (6)
  1. GILENYA(FINGOLIMOD) [Suspect]
     Indication: MULTIPLE SCLEROSIS
     Route: 048
     Dates: start: 201102
  2. AMPYRA (FAMPRIDINE) TABLET, 10MG [Suspect]
     Indication: GAIT DISTURBANCE
     Route: 048
     Dates: start: 201101
  3. VIT D (ERGOCALCIFEROL) [Concomitant]
  4. OXYBUTYNIN CHLORIDE (OXYBUTYNIN HYDROCHLORIDE) [Concomitant]
  5. ESTRADIOL (ESTRADIOL) (GEL) [Suspect]
  6. DIAZEPAM (DIAZEPAM) [Concomitant]

REACTIONS (6)
  - Abdominal discomfort [None]
  - Nausea [None]
  - Blood count abnormal [None]
  - Vision blurred [None]
  - Condition aggravated [None]
  - Urinary tract infection [None]
